FAERS Safety Report 18463180 (Version 1)
Quarter: 2020Q4

REPORT INFORMATION
  Report Type: Spontaneous
  Country: IT (occurrence: IT)
  Receive Date: 20201104
  Receipt Date: 20201104
  Transmission Date: 20210114
  Serious: Yes (Hospitalization)
  Sender: FDA-Public Use
  Company Number: IT-MYLANLABS-2020M1092332

PATIENT
  Age: 71 Year
  Sex: Male

DRUGS (2)
  1. OXALIPLATIN. [Suspect]
     Active Substance: OXALIPLATIN
     Indication: ADENOCARCINOMA GASTRIC
     Dosage: 120 MILLIGRAM/SQ. METER, ON DAY 1 IN A CYCLE OF 21 DAYS
     Route: 065
     Dates: start: 201809
  2. CAPECITABINE. [Suspect]
     Active Substance: CAPECITABINE
     Indication: ADENOCARCINOMA GASTRIC
     Dosage: 825 MG/MQ2 TWICE A DAY FOR 14 DAYS IN A CYCLE OF 21 DAYS
     Route: 065
     Dates: start: 201809

REACTIONS (7)
  - Thrombocytopenia [Recovered/Resolved]
  - Pleural effusion [Recovering/Resolving]
  - Diarrhoea [Recovered/Resolved]
  - Ascites [Recovering/Resolving]
  - Hepatic necrosis [Recovering/Resolving]
  - Hepatic infarction [Recovering/Resolving]
  - Hepatic atrophy [Recovering/Resolving]
